FAERS Safety Report 6928944-7 (Version None)
Quarter: 2010Q3

REPORT INFORMATION
  Report Type: 
  Country: None (occurrence: None)
  Receive Date: 20100817
  Receipt Date: 20100803
  Transmission Date: 20110219
  Serious: Yes (Hospitalization)
  Sender: FDA-Public Use
  Company Number: PHHY2010FR51743

PATIENT
  Sex: Female

DRUGS (4)
  1. LOPRESSOR [Suspect]
     Indication: MIGRAINE
     Dosage: UNK
     Route: 048
     Dates: start: 20100607, end: 20100629
  2. AERIUS [Suspect]
     Indication: HYPERSENSITIVITY
     Dosage: UNK
     Route: 048
     Dates: start: 20100401, end: 20100630
  3. MEXITIL [Suspect]
     Indication: MYOTONIA
     Dosage: UNK
     Route: 048
     Dates: start: 20100512, end: 20100629
  4. ATARAX [Suspect]
     Dosage: UNK
     Route: 048
     Dates: start: 20100610, end: 20100701

REACTIONS (1)
  - DYSPNOEA EXERTIONAL [None]
